FAERS Safety Report 16941671 (Version 3)
Quarter: 2020Q1

REPORT INFORMATION
  Report Type: Report from Study
  Country: GB (occurrence: GB)
  Receive Date: 20191021
  Receipt Date: 20200218
  Transmission Date: 20200409
  Serious: Yes (Other)
  Sender: FDA-Public Use
  Company Number: PHHY2019GB140721

PATIENT
  Sex: Female

DRUGS (1)
  1. COSENTYX [Suspect]
     Active Substance: SECUKINUMAB
     Indication: PSORIATIC ARTHROPATHY
     Dosage: 150 MG, QMO
     Route: 058
     Dates: start: 20190608

REACTIONS (21)
  - Insomnia [Unknown]
  - Osteitis [Unknown]
  - Fatigue [Not Recovered/Not Resolved]
  - Dizziness [Unknown]
  - Somnolence [Unknown]
  - Swelling face [Unknown]
  - Anxiety [Unknown]
  - Drug ineffective [Unknown]
  - Breast pain [Unknown]
  - Depression [Unknown]
  - Weight increased [Unknown]
  - Pain [Not Recovered/Not Resolved]
  - Malaise [Recovering/Resolving]
  - Pain in jaw [Unknown]
  - Chest pain [Unknown]
  - Feeling abnormal [Unknown]
  - Psoriatic arthropathy [Not Recovered/Not Resolved]
  - Nausea [Recovering/Resolving]
  - Headache [Unknown]
  - Gait disturbance [Unknown]
  - Mental disorder [Unknown]
